FAERS Safety Report 8445084-9 (Version None)
Quarter: 2012Q2

REPORT INFORMATION
  Report Type: 
  Country: None (occurrence: None)
  Receive Date: 20120618
  Receipt Date: 20120611
  Transmission Date: 20120825
  Serious: Yes (Hospitalization)
  Sender: FDA-Public Use
  Company Number: FR-ROCHE-1077578

PATIENT
  Sex: Male
  Weight: 98 kg

DRUGS (9)
  1. ACETAMINOPHEN [Concomitant]
  2. NEXIUM [Concomitant]
     Route: 048
  3. PREDNISONE TAB [Concomitant]
     Route: 048
     Dates: start: 20080923
  4. KAYEXALATE [Concomitant]
  5. CALCIUM CARBONATE [Concomitant]
     Route: 048
  6. CELLCEPT [Suspect]
     Indication: RENAL TRANSPLANT
     Route: 048
     Dates: start: 20080923
  7. TRAMADOL HCL [Concomitant]
     Route: 048
     Dates: start: 20090928
  8. TACROLIMUS [Suspect]
     Indication: RENAL TRANSPLANT
     Route: 048
     Dates: start: 20110823
  9. LESCOL [Concomitant]
     Route: 048

REACTIONS (1)
  - HLA MARKER STUDY POSITIVE [None]
